FAERS Safety Report 9170320 (Version 2)
Quarter: 2013Q2

REPORT INFORMATION
  Report Type: Spontaneous
  Country: US (occurrence: US)
  Receive Date: 20130319
  Receipt Date: 20130401
  Transmission Date: 20140414
  Serious: Yes (Other)
  Sender: FDA-Public Use
  Company Number: US-JNJFOC-20130300161

PATIENT
  Age: 54 Year
  Sex: Female
  Weight: 77.11 kg

DRUGS (25)
  1. XARELTO [Suspect]
     Indication: THROMBOSIS
     Route: 048
     Dates: start: 20130226
  2. XARELTO [Suspect]
     Indication: THROMBOSIS
     Route: 048
     Dates: start: 20130223, end: 20130226
  3. XARELTO [Suspect]
     Indication: THROMBOSIS
     Route: 048
     Dates: start: 20130222, end: 20130223
  4. XARELTO [Suspect]
     Indication: THROMBOSIS
     Route: 048
     Dates: start: 20130221, end: 20130222
  5. XARELTO [Suspect]
     Indication: THROMBOSIS
     Route: 048
     Dates: start: 20130220, end: 20130221
  6. REQUIP [Concomitant]
     Indication: NEUROPATHY PERIPHERAL
     Route: 048
  7. REQUIP [Concomitant]
     Indication: DYSKINESIA
     Route: 048
  8. PLAQUENIL [Concomitant]
     Indication: AUTOIMMUNE DISORDER
     Route: 048
  9. PLAQUENIL [Concomitant]
     Indication: SYSTEMIC LUPUS ERYTHEMATOSUS
     Route: 048
  10. PLAQUENIL [Concomitant]
     Indication: SJOGREN^S SYNDROME
     Route: 048
  11. POTASSIUM CHLORIDE [Concomitant]
     Indication: DIURETIC THERAPY
     Route: 048
  12. TORSEMIDE [Concomitant]
     Indication: FLUID RETENTION
     Route: 048
  13. SOMA [Concomitant]
     Indication: BACK DISORDER
     Route: 048
  14. SOMA [Concomitant]
     Indication: MUSCLE DISORDER
     Route: 048
  15. PROPANOL [Concomitant]
     Indication: CARDIAC VALVE DISEASE
     Route: 048
  16. PROPANOL [Concomitant]
     Indication: BLOOD PRESSURE
     Route: 048
  17. TEMAZEPAM [Concomitant]
     Indication: SLEEP DISORDER
     Dosage: AT NIGHT
     Route: 048
  18. RANITIDINE [Concomitant]
     Indication: GASTROOESOPHAGEAL REFLUX DISEASE
     Route: 048
  19. WELCHOL [Concomitant]
     Indication: GALLBLADDER DISORDER
     Route: 048
  20. WELCHOL [Concomitant]
     Indication: DIARRHOEA
     Route: 048
  21. AZATHIOPRINE [Concomitant]
     Indication: AUTOIMMUNE DISORDER
     Route: 048
     Dates: start: 2012
  22. AZATHIOPRINE [Concomitant]
     Indication: PROPHYLAXIS AGAINST TRANSPLANT REJECTION
     Route: 048
     Dates: start: 2012
  23. LOVAZA [Concomitant]
     Indication: BLOOD TRIGLYCERIDES ABNORMAL
     Route: 048
  24. LUNESTA [Concomitant]
     Indication: SLEEP DISORDER
     Dosage: 3- 6 MG AS NEEDED
     Route: 048
  25. OXYGEN [Concomitant]
     Dosage: NIGHTLY
     Route: 065

REACTIONS (7)
  - Dyspnoea [Not Recovered/Not Resolved]
  - Epistaxis [Recovered/Resolved]
  - Chest pain [Not Recovered/Not Resolved]
  - Pain in extremity [Not Recovered/Not Resolved]
  - Headache [Not Recovered/Not Resolved]
  - Hypoaesthesia [Not Recovered/Not Resolved]
  - Abdominal distension [Not Recovered/Not Resolved]
